FAERS Safety Report 10990374 (Version 1)
Quarter: 2015Q2

REPORT INFORMATION
  Report Type: Spontaneous
  Country: US (occurrence: US)
  Receive Date: 20150406
  Receipt Date: 20150406
  Transmission Date: 20150821
  Serious: No
  Sender: FDA-Public Use
  Company Number: US-TEVA-549081USA

PATIENT
  Sex: Female

DRUGS (1)
  1. QVAR [Suspect]
     Active Substance: BECLOMETHASONE DIPROPIONATE

REACTIONS (5)
  - Dysgeusia [Unknown]
  - Wrong technique in drug usage process [Unknown]
  - Product taste abnormal [Unknown]
  - Dizziness [Unknown]
  - Device malfunction [Unknown]
